FAERS Safety Report 18506786 (Version 4)
Quarter: 2020Q4

REPORT INFORMATION
  Report Type: Report from Study
  Country: AU (occurrence: AU)
  Receive Date: 20201116
  Receipt Date: 20201223
  Transmission Date: 20210114
  Serious: Yes (Hospitalization)
  Sender: FDA-Public Use
  Company Number: AU-REGENERON PHARMACEUTICALS, INC.-2020-87746

PATIENT

DRUGS (9)
  1. CEMIPLIMAB [Suspect]
     Active Substance: CEMIPLIMAB
     Indication: SQUAMOUS CELL CARCINOMA OF SKIN
     Dosage: 350 MG, Q3W
     Route: 042
     Dates: start: 20200923, end: 20200923
  2. COLCHICINE. [Concomitant]
     Active Substance: COLCHICINE
     Indication: GOUT
     Dosage: 500 ?G, QD
     Route: 048
     Dates: start: 2010
  3. PALEXIA [Concomitant]
     Active Substance: TAPENTADOL HYDROCHLORIDE
     Indication: FACIAL PAIN
     Dosage: 50 MG, AS NECESSARY
     Route: 048
     Dates: start: 20200801
  4. HYDROCORTISONE. [Concomitant]
     Active Substance: HYDROCORTISONE
     Indication: RASH
     Dosage: 1 SMEAR, BID
     Route: 061
     Dates: start: 20201013
  5. PREGABALIN. [Concomitant]
     Active Substance: PREGABALIN
     Indication: FACIAL PAIN
     Dosage: 300 MG, BID
     Route: 048
     Dates: start: 20200801
  6. INDOCID                            /00003801/ [Concomitant]
     Active Substance: INDOMETHACIN
     Indication: GOUT
     Dosage: 25 MG, AS NECESSARY
     Route: 048
     Dates: start: 2010, end: 20201201
  7. MOVICOL [Concomitant]
     Active Substance: POLYETHYLENE GLYCOL 3350\POTASSIUM CHLORIDE\SODIUM BICARBONATE\SODIUM CHLORIDE
     Indication: CONSTIPATION
     Dosage: 13.8 G, AS NECESSARY
     Route: 048
     Dates: start: 202003, end: 20201126
  8. PALEXIA [Concomitant]
     Active Substance: TAPENTADOL HYDROCHLORIDE
     Indication: FACIAL PAIN
     Dosage: 150 MG, BID
     Route: 048
     Dates: start: 202008, end: 20201125
  9. METFORMIN [Concomitant]
     Active Substance: METFORMIN HYDROCHLORIDE
     Indication: DIABETES MELLITUS
     Dosage: 500 MG, BID
     Route: 048
     Dates: start: 2018, end: 20201126

REACTIONS (1)
  - Febrile neutropenia [Recovered/Resolved]

NARRATIVE: CASE EVENT DATE: 20201109
